FAERS Safety Report 10231950 (Version 3)
Quarter: 2015Q4

REPORT INFORMATION
  Report Type: Report from Study
  Country: US (occurrence: US)
  Receive Date: 20140612
  Receipt Date: 20151023
  Transmission Date: 20160304
  Serious: Yes (Hospitalization)
  Sender: FDA-Public Use
  Company Number: US-BIOGENIDEC-2014BI054106

PATIENT
  Age: 42 Year
  Sex: Female

DRUGS (1)
  1. TECFIDERA [Suspect]
     Active Substance: DIMETHYL FUMARATE
     Indication: MULTIPLE SCLEROSIS
     Route: 048
     Dates: start: 20140318

REACTIONS (4)
  - Lung disorder [Not Recovered/Not Resolved]
  - Fall [Recovered/Resolved]
  - Noninfective encephalitis [Unknown]
  - Multiple allergies [Unknown]

NARRATIVE: CASE EVENT DATE: 20140516
